FAERS Safety Report 14681741 (Version 9)
Quarter: 2020Q4

REPORT INFORMATION
  Report Type: Spontaneous
  Country: US (occurrence: US)
  Receive Date: 20180326
  Receipt Date: 20201120
  Transmission Date: 20210113
  Serious: No
  Sender: FDA-Public Use
  Company Number: US-VIFOR (INTERNATIONAL) INC.-VIT-2018-02705

PATIENT
  Age: 73 Year
  Sex: Female

DRUGS (25)
  1. VELTASSA [Suspect]
     Active Substance: PATIROMER
     Route: 048
  2. GLUCOSAMINE HCL [Concomitant]
     Active Substance: GLUCOSAMINE
  3. METAMUCIL [Concomitant]
     Active Substance: PLANTAGO SEED
  4. VITAMIN D3 [Concomitant]
     Active Substance: CHOLECALCIFEROL
  5. ACETAMINOPHEN. [Concomitant]
     Active Substance: ACETAMINOPHEN
  6. ALENDRONATE SODIUM. [Concomitant]
     Active Substance: ALENDRONATE SODIUM
  7. DOCUSATE CALCIUM. [Concomitant]
     Active Substance: DOCUSATE CALCIUM
  8. FLAXSEED [Concomitant]
     Active Substance: FLAX SEED
  9. LORATADINE. [Concomitant]
     Active Substance: LORATADINE
  10. MECLIZINE HCL [Concomitant]
     Active Substance: MECLIZINE HYDROCHLORIDE
  11. STOOL SOFTENER (DOCUSATE) [Concomitant]
     Active Substance: DOCUSATE
  12. MULTIPLE VITAMINS [Concomitant]
     Active Substance: VITAMINS
  13. VELTASSA [Suspect]
     Active Substance: PATIROMER
     Indication: HYPERKALAEMIA
     Route: 048
     Dates: start: 20160129
  14. CLEARLAX [Concomitant]
     Active Substance: POLYETHYLENE GLYCOL 3350
  15. ALLERGY RELIEF [Concomitant]
  16. RANITIDINE HCL [Concomitant]
     Active Substance: RANITIDINE HYDROCHLORIDE
  17. AMOXICILLIN. [Concomitant]
     Active Substance: AMOXICILLIN
  18. VELTASSA [Suspect]
     Active Substance: PATIROMER
     Route: 048
  19. FLUDROCORTISONE ACETATE. [Concomitant]
     Active Substance: FLUDROCORTISONE ACETATE
  20. MAGNESIUM CITRATE. [Concomitant]
     Active Substance: MAGNESIUM CITRATE
  21. LOSARTAN POTASSIUM. [Concomitant]
     Active Substance: LOSARTAN POTASSIUM
  22. AZITHROMYCIN ANHYDROUS. [Concomitant]
     Active Substance: AZITHROMYCIN ANHYDROUS
  23. VITAMIN B COMPLEX [Concomitant]
     Active Substance: CYANOCOBALAMIN\DEXPANTHENOL\NIACINAMIDE\PYRIDOXINE HYDROCHLORIDE\RIBOFLAVIN 5^-PHOSPHATE SODIUM\THIAMINE HYDROCHLORIDE\VITAMIN B COMPLEX
  24. FUROSEMIDE. [Concomitant]
     Active Substance: FUROSEMIDE
  25. LINZESS [Concomitant]
     Active Substance: LINACLOTIDE

REACTIONS (11)
  - Rash pruritic [Unknown]
  - Skin swelling [Not Recovered/Not Resolved]
  - Rash erythematous [Unknown]
  - Pruritus [Not Recovered/Not Resolved]
  - Inappropriate schedule of product administration [Unknown]
  - Sinusitis [Not Recovered/Not Resolved]
  - Erythema [Not Recovered/Not Resolved]
  - Cough [Unknown]
  - Gastrooesophageal reflux disease [Unknown]
  - Tremor [Unknown]
  - Constipation [Not Recovered/Not Resolved]

NARRATIVE: CASE EVENT DATE: 201801
